FAERS Safety Report 8986036 (Version 1)
Quarter: 2012Q4

REPORT INFORMATION
  Report Type: Spontaneous
  Country: US (occurrence: None)
  Receive Date: 20121214
  Receipt Date: 20121214
  Transmission Date: 20130627
  Serious: Yes (Disabling)
  Sender: FDA-Public Use
  Company Number: AUR-APL-2012-05272

PATIENT
  Age: 90 Year
  Sex: Male
  Weight: 74.39 kg

DRUGS (4)
  1. LEVOFLOXACIN (LEVOFLOXACIN) [Suspect]
     Indication: COLITIS
     Dates: start: 20121129, end: 20121203
  2. METRONIDAZOLE (METRONIDAZOLE) [Suspect]
     Indication: DIARRHEA
  3. SYNTHROID (LEVOTHYROXINE SODIUM) [Concomitant]
  4. OMEPRAZOLE [Concomitant]

REACTIONS (6)
  - Nausea [None]
  - Dizziness [None]
  - Headache [None]
  - Urine output decreased [None]
  - Joint swelling [None]
  - Abasia [None]
